FAERS Safety Report 20618609 (Version 1)
Quarter: 2022Q1

REPORT INFORMATION
  Report Type: Spontaneous
  Country: NL (occurrence: NL)
  Receive Date: 20220322
  Receipt Date: 20220322
  Transmission Date: 20220424
  Serious: Yes (Hospitalization)
  Sender: FDA-Public Use
  Company Number: NL-LRB-00796470

PATIENT
  Sex: Female
  Weight: 68 kg

DRUGS (3)
  1. ALENDRONIC ACID [Suspect]
     Active Substance: ALENDRONIC ACID
     Indication: Osteoporosis
     Dosage: 70 MILLIGRAM, ONCE A DAY (1 X PER WEEK 1 PIECE)
     Route: 065
     Dates: start: 2015, end: 20210201
  2. CHOLECALCIFEROL [Concomitant]
     Active Substance: CHOLECALCIFEROL
     Indication: Product used for unknown indication
     Dosage: 25 MICROGRAM
     Route: 065
  3. CALCIUM CARBONATE [Concomitant]
     Active Substance: CALCIUM CARBONATE
     Indication: Product used for unknown indication
     Dosage: 500 MILLIGRAM
     Route: 065

REACTIONS (1)
  - Stress fracture [Unknown]
